FAERS Safety Report 11638095 (Version 1)
Quarter: 2015Q4

REPORT INFORMATION
  Report Type: Spontaneous
  Country: GB (occurrence: GB)
  Receive Date: 20151016
  Receipt Date: 20151016
  Transmission Date: 20160304
  Serious: Yes (Hospitalization, Other)
  Sender: FDA-Public Use
  Company Number: GB-AMGEN-GBRSP2015107145

PATIENT
  Age: 54 Year
  Sex: Female
  Weight: 105 kg

DRUGS (6)
  1. XGEVA [Suspect]
     Active Substance: DENOSUMAB
     Indication: BREAST CANCER METASTATIC
     Dosage: 120 MG, UNK
     Route: 058
     Dates: start: 20130924, end: 20150515
  2. SALBUTAMOL [Concomitant]
     Active Substance: ALBUTEROL
  3. SERETIDE [Concomitant]
     Active Substance: FLUTICASONE FUROATE\SALMETEROL XINAFOATE
  4. ZOMORPH [Concomitant]
     Active Substance: MORPHINE SULFATE
  5. ENOXAPARIN [Concomitant]
     Active Substance: ENOXAPARIN
  6. SEVREDOL [Concomitant]
     Active Substance: MORPHINE

REACTIONS (1)
  - Osteonecrosis of jaw [Not Recovered/Not Resolved]

NARRATIVE: CASE EVENT DATE: 20150914
